FAERS Safety Report 5775102-8 (Version None)
Quarter: 2008Q2

REPORT INFORMATION
  Report Type: 
  Country: None (occurrence: None)
  Receive Date: 20080612
  Receipt Date: 20080528
  Transmission Date: 20081010
  Serious: Yes (Hospitalization)
  Sender: FDA-Public Use
  Company Number: 2008001137

PATIENT
  Age: 63 Year
  Sex: Male
  Weight: 91.6 kg

DRUGS (5)
  1. ERLOTINIB (ERLOTINIB) (TABLET) (ERLOTINIB) [Suspect]
     Indication: OESOPHAGEAL CARCINOMA
     Dosage: (100 MG,QD), ORAL
     Route: 048
     Dates: start: 20080326
  2. BEVACIZUMAB (INJECTION FOR INFUSION) [Suspect]
     Dosage: (15 MG/KG), INTRAVENOUS
     Route: 042
     Dates: start: 20080325
  3. PACLITAXEL [Concomitant]
  4. CARBOPLATIN [Concomitant]
  5. FLUOROURACIL [Concomitant]

REACTIONS (1)
  - WOUND EVISCERATION [None]
